FAERS Safety Report 6263035-2 (Version None)
Quarter: 2009Q3

REPORT INFORMATION
  Report Type: 
  Country: None (occurrence: None)
  Receive Date: 20090707
  Receipt Date: 20090707
  Transmission Date: 20100115
  Serious: No
  Sender: FDA-Public Use
  Company Number: None

PATIENT
  Sex: Male
  Weight: 103.8737 kg

DRUGS (3)
  1. DEPAKOTE [Suspect]
     Indication: ACQUIRED IMMUNODEFICIENCY SYNDROME
     Dosage: 500MG PO 2 TABS Q 12 HOURS
     Route: 048
     Dates: start: 20090301
  2. DEPAKOTE [Suspect]
     Indication: CEREBROVASCULAR ACCIDENT
     Dosage: 500MG PO 2 TABS Q 12 HOURS
     Route: 048
     Dates: start: 20090301
  3. DEPAKOTE [Suspect]
     Indication: CONVULSION
     Dosage: 500MG PO 2 TABS Q 12 HOURS
     Route: 048
     Dates: start: 20090301

REACTIONS (5)
  - CONSTIPATION [None]
  - GENERALISED OEDEMA [None]
  - HALLUCINATION [None]
  - PRODUCT SUBSTITUTION ISSUE [None]
  - RASH [None]
